FAERS Safety Report 7280731-9 (Version None)
Quarter: 2011Q1

REPORT INFORMATION
  Report Type: 
  Country: None (occurrence: None)
  Receive Date: 20110208
  Receipt Date: 20110131
  Transmission Date: 20110831
  Serious: Yes (Death)
  Sender: FDA-Public Use
  Company Number: B0698286A

PATIENT
  Age: 51 Year
  Sex: Male

DRUGS (5)
  1. EFAVIRENZ [Suspect]
     Indication: HIV INFECTION
     Route: 065
     Dates: start: 20051001
  2. ATAZANAVIR [Suspect]
     Indication: HIV INFECTION
     Route: 065
     Dates: start: 20060201
  3. AMLODIPINE [Suspect]
     Indication: HYPERTENSION
     Route: 065
  4. RITONAVIR [Suspect]
     Indication: HIV INFECTION
     Route: 065
     Dates: start: 20060201, end: 20081101
  5. KIVEXA [Suspect]
     Indication: HIV INFECTION
     Route: 065
     Dates: start: 20051001, end: 20100101

REACTIONS (10)
  - CARDIAC ENZYMES [None]
  - ABDOMINAL PAIN [None]
  - VOMITING [None]
  - ARRHYTHMIA [None]
  - ACUTE MYOCARDIAL INFARCTION [None]
  - MICROALBUMINURIA [None]
  - DEATH [None]
  - NAUSEA [None]
  - TREATMENT NONCOMPLIANCE [None]
  - CHOLESTASIS [None]
